FAERS Safety Report 8496459 (Version 2)
Quarter: 2012Q4

REPORT INFORMATION
  Report Type: Spontaneous
  Country: JP (occurrence: None)
  Receive Date: 20120329
  Receipt Date: 20121109
  Transmission Date: 20130627
  Serious: Yes (Death, Hospitalization)
  Sender: FDA-Public Use
  Company Number: 2012S1000348

PATIENT
  Age: 70 Year
  Sex: Male

DRUGS (14)
  1. CUBICIN [Suspect]
     Indication: HYPERCHOLESTEROLAEMIA
     Dosage: 2 MG; 1X; PO
     Route: 042
     Dates: start: 20120313, end: 20120404
  2. ARTIST [Concomitant]
  3. ALL OTHER THERAPEUTIC PRODUCTS [Concomitant]
  4. ALLELOCK [Concomitant]
  5. ALLELOCK [Concomitant]
  6. HYDROXYZINE [Concomitant]
  7. RILMAZAFONE [Concomitant]
  8. OXINORM [Concomitant]
  9. PROCHLORPERAZINE [Concomitant]
  10. MAGLAX [Concomitant]
  11. LYRICA [Concomitant]
  12. ALL OTHER THERAPEUTIC PRODUCTS [Concomitant]
  13. GLIVEC [Concomitant]
  14. CEFTRIAXONE [Concomitant]

REACTIONS (6)
  - Liver disorder [None]
  - Stevens-Johnson syndrome [None]
  - Cardiac failure acute [None]
  - Pleural effusion [None]
  - Staphylococcus test positive [None]
  - Renal failure acute [None]
